FAERS Safety Report 10766455 (Version 3)
Quarter: 2016Q4

REPORT INFORMATION
  Report Type: Spontaneous
  Country: US (occurrence: US)
  Receive Date: 20150205
  Receipt Date: 20161221
  Transmission Date: 20170206
  Serious: Yes (Other)
  Sender: FDA-Public Use
  Company Number: US-PFIZER INC-2015048177

PATIENT
  Age: 38 Year
  Sex: Female
  Weight: 52 kg

DRUGS (2)
  1. DILANTIN [Suspect]
     Active Substance: PHENYTOIN
     Indication: EPILEPSY
  2. DILANTIN [Suspect]
     Active Substance: PHENYTOIN
     Indication: GENERALISED TONIC-CLONIC SEIZURE
     Dosage: 100 MG, 3X/DAY
     Route: 048
     Dates: start: 201107, end: 201210

REACTIONS (13)
  - Diarrhoea [Unknown]
  - Blood triglycerides increased [Unknown]
  - Toxicity to various agents [Unknown]
  - Aspartate aminotransferase increased [Recovered/Resolved]
  - Musculoskeletal chest pain [Unknown]
  - Nausea [Unknown]
  - Alanine aminotransferase increased [Recovered/Resolved]
  - Anticonvulsant drug level decreased [Unknown]
  - Weight decreased [Unknown]
  - Pancreatitis acute [Unknown]
  - Apparent death [Unknown]
  - Vomiting [Unknown]
  - Dyspepsia [Unknown]

NARRATIVE: CASE EVENT DATE: 201205
